FAERS Safety Report 6368654-0 (Version None)
Quarter: 2009Q3

REPORT INFORMATION
  Report Type: 
  Country: None (occurrence: None)
  Receive Date: 20090922
  Receipt Date: 20090909
  Transmission Date: 20100115
  Serious: Yes (Death, Hospitalization)
  Sender: FDA-Public Use
  Company Number: US-GENENTECH-289507

PATIENT
  Age: 53 Year
  Sex: Male
  Weight: 65.76 kg

DRUGS (3)
  1. BEVACIZUMAB [Suspect]
     Indication: OESOPHAGEAL CARCINOMA
     Dosage: 575 MG, UNK
     Route: 042
     Dates: start: 20090403, end: 20090424
  2. DOCETAXEL [Suspect]
     Indication: OESOPHAGEAL CARCINOMA
     Dosage: 140 MG, UNK
     Route: 042
     Dates: start: 20090403, end: 20090424
  3. OXALIPLATIN [Suspect]
     Indication: OESOPHAGEAL CARCINOMA
     Dosage: 150 MG, UNK
     Route: 042
     Dates: start: 20090403, end: 20090424

REACTIONS (10)
  - ABDOMINAL PAIN [None]
  - DEATH [None]
  - DECREASED APPETITE [None]
  - DEPRESSION [None]
  - DISEASE PROGRESSION [None]
  - DIZZINESS [None]
  - FAILURE TO THRIVE [None]
  - NAUSEA [None]
  - RASH PRURITIC [None]
  - VOMITING [None]
